FAERS Safety Report 21739109 (Version 3)
Quarter: 2023Q1

REPORT INFORMATION
  Report Type: Spontaneous
  Country: US (occurrence: US)
  Receive Date: 20221216
  Receipt Date: 20230123
  Transmission Date: 20230417
  Serious: No
  Sender: FDA-Public Use
  Company Number: US-SA-SAC20221214001150

PATIENT
  Sex: Female
  Weight: 57.5 kg

DRUGS (1)
  1. DUPIXENT [Suspect]
     Active Substance: DUPILUMAB
     Indication: Eosinophilic oesophagitis
     Dosage: 300 MG, QW
     Route: 058

REACTIONS (5)
  - Injection site pain [Unknown]
  - Peripheral swelling [Unknown]
  - Urticaria [Unknown]
  - Hypersensitivity [Unknown]
  - Rash [Unknown]
